FAERS Safety Report 4698201-0 (Version None)
Quarter: 2005Q2

REPORT INFORMATION
  Report Type: 
  Country: None (occurrence: None)
  Receive Date: 20050623
  Receipt Date: 20050614
  Transmission Date: 20051028
  Serious: Yes (Other)
  Sender: FDA-Public Use
  Company Number: US-MERCK-0506USA02181

PATIENT
  Sex: Female

DRUGS (1)
  1. VIOXX [Suspect]
     Indication: LUMBAR VERTEBRA INJURY
     Route: 048
     Dates: start: 20020501

REACTIONS (5)
  - ASTHENIA [None]
  - DYSPNOEA [None]
  - GASTROOESOPHAGEAL REFLUX DISEASE [None]
  - LIPIDS INCREASED [None]
  - MYOCARDIAL INFARCTION [None]
